FAERS Safety Report 21313932 (Version 3)
Quarter: 2024Q4

REPORT INFORMATION
  Report Type: Report from Study
  Country: FR (occurrence: FR)
  Receive Date: 20220909
  Receipt Date: 20241204
  Transmission Date: 20250115
  Serious: Yes (Death, Hospitalization, Other)
  Sender: GILEAD
  Company Number: FR-GILEAD-2022-0568415

PATIENT
  Sex: Female
  Weight: 79 kg

DRUGS (5)
  1. SACITUZUMAB GOVITECAN-HZIY [Suspect]
     Active Substance: SACITUZUMAB GOVITECAN-HZIY
     Indication: Triple negative breast cancer
     Dosage: 10 MG/KG, C1D1,D8
     Route: 042
     Dates: start: 20211116, end: 20211125
  2. SACITUZUMAB GOVITECAN-HZIY [Suspect]
     Active Substance: SACITUZUMAB GOVITECAN-HZIY
     Dosage: 5 MG/KG, C2D1,D8
     Route: 042
     Dates: start: 20211216, end: 20211223
  3. SACITUZUMAB GOVITECAN-HZIY [Suspect]
     Active Substance: SACITUZUMAB GOVITECAN-HZIY
     Dosage: 5 MG/KG, C3D1,D8
     Route: 042
     Dates: start: 20220106, end: 20220113
  4. SACITUZUMAB GOVITECAN-HZIY [Suspect]
     Active Substance: SACITUZUMAB GOVITECAN-HZIY
     Dosage: 5 MG/KG, C4D1,D8
     Route: 042
     Dates: start: 20220210
  5. TAXOL [Concomitant]
     Active Substance: PACLITAXEL

REACTIONS (7)
  - Bone marrow failure [Fatal]
  - Congenital aplasia [Unknown]
  - Haematotoxicity [Unknown]
  - Off label use [Unknown]
  - Off label use [Unknown]
  - Off label use [Unknown]
  - Off label use [Unknown]
